FAERS Safety Report 4701047-8 (Version None)
Quarter: 2005Q2

REPORT INFORMATION
  Report Type: 
  Country: None (occurrence: None)
  Receive Date: 20050628
  Receipt Date: 20050617
  Transmission Date: 20051028
  Serious: Yes (Hospitalization)
  Sender: FDA-Public Use
  Company Number: US-JNJFOC-20050605053

PATIENT
  Sex: Female
  Weight: 64.41 kg

DRUGS (9)
  1. REMICADE [Suspect]
     Indication: RHEUMATOID ARTHRITIS
     Route: 042
  2. ZOFRAN [Concomitant]
  3. ZIAC [Concomitant]
  4. ZIAC [Concomitant]
  5. ASPIRIN [Concomitant]
  6. PREVACID [Concomitant]
  7. CLONIDINE [Concomitant]
  8. LIPITOR [Concomitant]
  9. OXYCONTIN [Concomitant]

REACTIONS (2)
  - DIABETES MELLITUS [None]
  - INFLAMMATION [None]
